FAERS Safety Report 9908559 (Version 1)
Quarter: 2014Q1

REPORT INFORMATION
  Report Type: Spontaneous
  Country: US (occurrence: None)
  Receive Date: 20140211
  Receipt Date: 20140211
  Transmission Date: 20141002
  Serious: Yes (Life-Threatening)
  Sender: FDA-Public Use
  Company Number: 2014P1000891

PATIENT
  Age: 85 Year
  Sex: Female

DRUGS (4)
  1. SULFAMETHOXAZOLE AND TRIMETHOPRIM [Suspect]
     Indication: URINARY TRACT INFECTION
  2. SPIRONOLACTONE [Suspect]
  3. VALSARTAN [Suspect]
  4. SOTALOL [Suspect]

REACTIONS (11)
  - Hyperkalaemia [None]
  - Blood pressure decreased [None]
  - Heart rate decreased [None]
  - Nodal rhythm [None]
  - Bundle branch block left [None]
  - Electrocardiogram QRS complex prolonged [None]
  - Electrocardiogram T wave peaked [None]
  - Metabolic acidosis [None]
  - Haemodialysis [None]
  - Blood urea increased [None]
  - Blood creatinine increased [None]
